FAERS Safety Report 10671205 (Version 2)
Quarter: 2014Q4

REPORT INFORMATION
  Report Type: Spontaneous
  Country: US (occurrence: None)
  Receive Date: 20141219
  Receipt Date: 20141229
  Transmission Date: 20150529
  Serious: Yes (Hospitalization)
  Sender: FDA-Public Use
  Company Number: 2014SA172886

PATIENT
  Age: 23 Year
  Sex: Male

DRUGS (1)
  1. DIPHENHYDRAMINE [Suspect]
     Active Substance: DIPHENHYDRAMINE
     Route: 048

REACTIONS (10)
  - Hypotension [None]
  - Intentional overdose [None]
  - Tachycardia [None]
  - Blood pH decreased [None]
  - Overdose [None]
  - Toxicity to various agents [None]
  - Defect conduction intraventricular [None]
  - Anion gap [None]
  - Seizure [None]
  - Anion gap increased [None]
